FAERS Safety Report 7812163-6 (Version None)
Quarter: 2011Q4

REPORT INFORMATION
  Report Type: 
  Country: None (occurrence: None)
  Receive Date: 20111013
  Receipt Date: 20111003
  Transmission Date: 20120403
  Serious: Yes (Hospitalization, Other)
  Sender: FDA-Public Use
  Company Number: PHHY2011CA76270

PATIENT
  Sex: Female

DRUGS (5)
  1. SANDOSTATIN [Suspect]
     Indication: ACROMEGALY
     Dosage: 50 UG, UNK
     Route: 058
     Dates: start: 20110729, end: 20110729
  2. SYNTHROID [Concomitant]
     Dosage: 88 MG, TID
  3. HUMALIN [Concomitant]
  4. LANREOTIDE [Concomitant]
  5. HUMALOG [Concomitant]

REACTIONS (6)
  - LABYRINTHITIS [None]
  - ASTHENIA [None]
  - VOMITING [None]
  - NAUSEA [None]
  - DIZZINESS [None]
  - VERTIGO [None]
